FAERS Safety Report 10541750 (Version 1)
Quarter: 2014Q4

REPORT INFORMATION
  Report Type: Spontaneous
  Country: US (occurrence: US)
  Receive Date: 20141024
  Receipt Date: 20141024
  Transmission Date: 20150529
  Serious: No
  Sender: FDA-Public Use
  Company Number: US-ALLERGAN-1417678US

PATIENT
  Sex: Male
  Weight: 93.42 kg

DRUGS (2)
  1. ALPHAGAN P [Suspect]
     Active Substance: BRIMONIDINE TARTRATE
     Indication: OPEN ANGLE GLAUCOMA
     Dosage: UNK UNK, BID
     Dates: start: 20120725, end: 20130715
  2. LATANOPROST. [Suspect]
     Active Substance: LATANOPROST
     Dosage: UNK UNK, QHS
     Route: 047
     Dates: start: 20110915, end: 20130715

REACTIONS (1)
  - Drug ineffective [Unknown]
